FAERS Safety Report 4975829-1 (Version None)
Quarter: 2006Q2

REPORT INFORMATION
  Report Type: 
  Country: None (occurrence: None)
  Receive Date: 20060411
  Receipt Date: 20060327
  Transmission Date: 20061013
  Serious: Yes (Other)
  Sender: FDA-Public Use
  Company Number: CIP06000711

PATIENT
  Age: 71 Year
  Sex: Female

DRUGS (4)
  1. ACTONEL [Suspect]
     Indication: OSTEOPOROSIS
     Dosage: 35 MG ONCE WEEKLY, ORAL
     Route: 048
  2. ZOCOR [Concomitant]
  3. SYNTHROID [Concomitant]
  4. ARIMIDEX [Concomitant]

REACTIONS (1)
  - BREAST CANCER FEMALE [None]
